FAERS Safety Report 8521209 (Version 4)
Quarter: 2012Q4

REPORT INFORMATION
  Report Type: 
  Country: GB (occurrence: GB)
  Receive Date: 20120412
  Receipt Date: 20121011
  Transmission Date: 20130627
  Serious: Yes (Other)
  Sender: FDA-Public Use
  Company Number: GB-MSD-2012SP017800

PATIENT
  Age: 38 Year
  Sex: Male
  Weight: 129.5 kg

DRUGS (2)
  1. MIRTAZAPINE [Suspect]
     Indication: ANXIETY
     Dosage: 15 mg, UNK
     Route: 048
     Dates: start: 20120104, end: 20120117
  2. MIRTAZAPINE [Suspect]
     Indication: DEPRESSED MOOD
     Dosage: 30 mg, UNK
     Route: 048
     Dates: start: 20120117

REACTIONS (4)
  - Psychotic disorder [Recovering/Resolving]
  - Irritability [Recovered/Resolved]
  - Paranoia [Recovered/Resolved]
  - Confusional state [Recovering/Resolving]
